FAERS Safety Report 6916478-5 (Version None)
Quarter: 2010Q3

REPORT INFORMATION
  Report Type: 
  Country: None (occurrence: None)
  Receive Date: 20100810
  Receipt Date: 20100803
  Transmission Date: 20110219
  Serious: Yes (Life-Threatening, Hospitalization)
  Sender: FDA-Public Use
  Company Number: PHHY2010FR51387

PATIENT
  Sex: Female

DRUGS (9)
  1. VALSARTAN AND HYDROCHLOROTHIAZIDE [Suspect]
     Dosage: UNK
     Dates: end: 20100212
  2. BI-PROFENID [Suspect]
     Indication: SCIATICA
     Dosage: UNK
     Dates: start: 20100209, end: 20100212
  3. METFORMIN HCL [Suspect]
     Dosage: UNK
     Dates: end: 20100212
  4. KARDEGIC [Concomitant]
  5. CRESTOR [Concomitant]
  6. FOSAMAX [Concomitant]
  7. SKENAN [Concomitant]
     Indication: SCIATICA
     Dosage: UNK
     Dates: start: 20100209
  8. MORPHINE [Concomitant]
     Indication: SCIATICA
     Dosage: UNK
     Dates: start: 20100209
  9. NSAID'S [Concomitant]

REACTIONS (8)
  - BLOOD CREATININE INCREASED [None]
  - BLOOD UREA INCREASED [None]
  - CARDIO-RESPIRATORY ARREST [None]
  - FALL [None]
  - HAEMODIALYSIS [None]
  - HYPERKALAEMIA [None]
  - LACTIC ACIDOSIS [None]
  - RENAL FAILURE ACUTE [None]
